FAERS Safety Report 20899054 (Version 15)
Quarter: 2024Q3

REPORT INFORMATION
  Report Type: Report from Study
  Country: US (occurrence: US)
  Receive Date: 20220601
  Receipt Date: 20240801
  Transmission Date: 20241016
  Serious: No
  Sender: DECIPHERA PHARMACEUTICALS
  Company Number: US-DECIPHERA PHARMACEUTICALS LLC-2022US000433

PATIENT
  Age: 64 Year
  Sex: Male

DRUGS (5)
  1. QINLOCK [Suspect]
     Active Substance: RIPRETINIB
     Indication: Gastrointestinal stromal tumour
     Dosage: 150 MILLIGRAM, QD
     Route: 048
     Dates: start: 202008
  2. QINLOCK [Suspect]
     Active Substance: RIPRETINIB
     Dosage: UNK, FROM 08-MAY-2023 TILL 23-MAY-2023 NOT RECEIVED QINLOCK
  3. QINLOCK [Suspect]
     Active Substance: RIPRETINIB
     Dosage: 150 MILLIGRAM, QD
     Route: 048
     Dates: end: 202309
  4. QINLOCK [Suspect]
     Active Substance: RIPRETINIB
     Dosage: 100 MILLIGRAM, QD
     Route: 048
     Dates: start: 20230905
  5. QINLOCK [Suspect]
     Active Substance: RIPRETINIB
     Dosage: 100 MILLIGRAM, QD
     Dates: start: 202312

REACTIONS (5)
  - Anxiety [Recovering/Resolving]
  - Muscle spasms [Recovered/Resolved]
  - Fatigue [Recovered/Resolved]
  - Myalgia [Recovered/Resolved]
  - Tooth fracture [Recovered/Resolved]

NARRATIVE: CASE EVENT DATE: 20220801
